FAERS Safety Report 25416105 (Version 1)
Quarter: 2025Q2

REPORT INFORMATION
  Report Type: Report from Study
  Country: US (occurrence: US)
  Receive Date: 20250610
  Receipt Date: 20250610
  Transmission Date: 20250717
  Serious: Yes (Hospitalization)
  Sender: ACADIA PHARMACEUTICALS
  Company Number: US-ACADIA PHARMACEUTICALS INC.-ACA-2025-PIM-006886

PATIENT
  Age: 73 Year
  Sex: Female

DRUGS (16)
  1. NUPLAZID [Suspect]
     Active Substance: PIMAVANSERIN TARTRATE
     Indication: Parkinson^s disease
     Dosage: 34 MILLIGRAM, QD
     Route: 048
     Dates: start: 20241202
  2. NUPLAZID [Suspect]
     Active Substance: PIMAVANSERIN TARTRATE
     Indication: Hallucination
  3. DONEPEZIL [Concomitant]
     Active Substance: DONEPEZIL
  4. CARBIDOPA\LEVODOPA [Concomitant]
     Active Substance: CARBIDOPA\LEVODOPA
  5. ROPINIROLE [Concomitant]
     Active Substance: ROPINIROLE
  6. TRAMADOL [Concomitant]
     Active Substance: TRAMADOL
  7. GABAPENTIN [Concomitant]
     Active Substance: GABAPENTIN
  8. PHENAZOPYRIDINE [Concomitant]
     Active Substance: PHENAZOPYRIDINE
  9. NITROFURANTOIN [Concomitant]
     Active Substance: NITROFURANTOIN
  10. OMEPRAZOLE [Concomitant]
     Active Substance: OMEPRAZOLE
  11. OXYBUTYNIN [Concomitant]
     Active Substance: OXYBUTYNIN
  12. AMOXICILLIN [Concomitant]
     Active Substance: AMOXICILLIN
  13. LUBIPROSTONE [Concomitant]
     Active Substance: LUBIPROSTONE
  14. SIMVASTATIN [Concomitant]
     Active Substance: SIMVASTATIN
  15. CEPHALEXIN [Concomitant]
     Active Substance: CEPHALEXIN
  16. VESICARE [Concomitant]
     Active Substance: SOLIFENACIN SUCCINATE

REACTIONS (2)
  - Movement disorder [Recovering/Resolving]
  - Speech disorder [Recovering/Resolving]

NARRATIVE: CASE EVENT DATE: 20250523
